FAERS Safety Report 24212209 (Version 1)
Quarter: 2024Q3

REPORT INFORMATION
  Report Type: Report from Study
  Country: US (occurrence: US)
  Receive Date: 20240815
  Receipt Date: 20240815
  Transmission Date: 20241017
  Serious: Yes (Hospitalization, Other)
  Sender: ABBVIE
  Company Number: US-ABBVIE-5875887

PATIENT
  Age: 53 Year
  Sex: Female

DRUGS (1)
  1. SKYRIZI [Suspect]
     Active Substance: RISANKIZUMAB-RZAA
     Indication: Psoriatic arthropathy
     Route: 058
     Dates: start: 20231031

REACTIONS (7)
  - Chest pain [Recovering/Resolving]
  - Pain [Recovering/Resolving]
  - COVID-19 [Recovering/Resolving]
  - Gastrointestinal inflammation [Unknown]
  - Epilepsy [Unknown]
  - Epiploic appendagitis [Unknown]
  - Burning sensation [Unknown]

NARRATIVE: CASE EVENT DATE: 20240803
